FAERS Safety Report 9521686 (Version 1)
Quarter: 2013Q1

REPORT INFORMATION
  Report Type: Spontaneous
  Country: US (occurrence: None)
  Receive Date: 20130305
  Receipt Date: 20130305
  Transmission Date: 20140127
  Serious: Yes (Other)
  Sender: FDA-Public Use
  Company Number: 163-21880-12072967

PATIENT
  Age: 76 Year
  Sex: Male
  Weight: 81.65 kg

DRUGS (9)
  1. REVLIMID [Suspect]
     Indication: MYELODYSPLASTIC SYNDROME
     Dosage: 1 IN 1 D
     Route: 048
     Dates: start: 20111202
  2. SIMVASTSTIN (SIMVASTATIN) (UNKNOWN) [Concomitant]
  3. TERAZOSIN (TERAZOSIN) (UNKNOWN) [Concomitant]
  4. LASIX (FUROSEMIDE) (UNKNOWN) [Concomitant]
  5. GLIMEPIRIDE (GLIMEPIRIDE) (UNKNOWN) [Concomitant]
  6. JANUVIA (SITAGLIPTIN PHOSPHATE) (UNKNOWN) [Concomitant]
  7. METOPROLOL (METOPROLOL) (UNKNOWN) [Concomitant]
  8. NORVASC (AMLODIPINE BESILATE) (UNKNOWN) [Concomitant]
  9. NOVOLOG 70/30 (UNKNOWN) [Concomitant]

REACTIONS (1)
  - Anaemia [None]
